FAERS Safety Report 5194294-5 (Version None)
Quarter: 2006Q4

REPORT INFORMATION
  Report Type: 
  Country: None (occurrence: None)
  Receive Date: 20061228
  Receipt Date: 20061016
  Transmission Date: 20070319
  Serious: Yes (Death, Other)
  Sender: FDA-Public Use
  Company Number: US-PFIZER INC-2006127127

PATIENT
  Age: 76 Year
  Sex: Male
  Weight: 93.4 kg

DRUGS (8)
  1. LYRICA [Suspect]
     Indication: DIABETIC NEUROPATHY
     Route: 048
     Dates: start: 20060103, end: 20060130
  2. HYDROCODONE BITARTRATE + ACETAMINOPHEN [Concomitant]
     Dosage: TEXT:7.5/500MG-FREQ:AS NEEDED
  3. ZANTAC [Concomitant]
  4. ALLOPURINOL SODIUM [Concomitant]
     Dosage: DAILY DOSE:100MG
  5. LASIX [Concomitant]
     Dosage: DAILY DOSE:40MG-FREQ:EVERY MORNING
  6. GLIPIZIDE [Concomitant]
     Dosage: DAILY DOSE:10MG-FREQ:EVERY MORNING
  7. BENAZEPRIL HYDROCHLORIDE [Concomitant]
     Dosage: TEXT:20/15-FREQ:EVERY MORNING
  8. HYDROCHLOROTHIAZIDE [Concomitant]
     Dosage: TEXT:20/15-FREQ:EVERY MORNING

REACTIONS (2)
  - CHRONIC OBSTRUCTIVE PULMONARY DISEASE [None]
  - STEVENS-JOHNSON SYNDROME [None]
